FAERS Safety Report 8604332-2 (Version None)
Quarter: 2012Q3

REPORT INFORMATION
  Report Type: 
  Country: None (occurrence: None)
  Receive Date: 20120820
  Receipt Date: 20120809
  Transmission Date: 20120928
  Serious: Yes (Hospitalization)
  Sender: FDA-Public Use
  Company Number: CA-JNJFOC-20120805015

PATIENT
  Sex: Female
  Weight: 65 kg

DRUGS (8)
  1. METHOTREXATE [Concomitant]
     Route: 065
  2. PANTOPRAZOLE SODIUM [Concomitant]
     Dosage: DOSE: 40
     Route: 065
  3. APO-FOLIC [Concomitant]
     Route: 065
  4. CELEBREX [Concomitant]
     Route: 065
  5. VITAMIN D [Concomitant]
     Route: 065
  6. CALCIUM [Concomitant]
     Route: 065
  7. REMICADE [Suspect]
     Indication: RHEUMATOID ARTHRITIS
     Route: 042
     Dates: start: 20111115
  8. FOSAMAX [Concomitant]
     Route: 065

REACTIONS (1)
  - DIVERTICULITIS [None]
